FAERS Safety Report 5080963-4 (Version None)
Quarter: 2006Q3

REPORT INFORMATION
  Report Type: 
  Country: None (occurrence: None)
  Receive Date: 20060810
  Receipt Date: 20060802
  Transmission Date: 20061208
  Serious: Yes (Hospitalization)
  Sender: FDA-Public Use
  Company Number: L06-NZL-02872-01

PATIENT
  Age: 46 Year
  Sex: Male

DRUGS (4)
  1. CITALOPRAM HYDROBROMIDE [Suspect]
     Dosage: 40 MG QD
  2. DEXTROMETHORPHAN HYDROBROMIDE [Suspect]
     Indication: COUGH
  3. METHADONE HCL [Concomitant]
  4. GABAPENTIN [Concomitant]

REACTIONS (11)
  - CEREBRAL DISORDER [None]
  - DEPRESSED LEVEL OF CONSCIOUSNESS [None]
  - DRUG INTERACTION [None]
  - HYPERTENSION [None]
  - HYPERTONIA [None]
  - NASOPHARYNGITIS [None]
  - PULSE ABNORMAL [None]
  - SEPSIS [None]
  - SEROTONIN SYNDROME [None]
  - TOOTH EXTRACTION [None]
  - VOMITING [None]
